FAERS Safety Report 21494921 (Version 2)
Quarter: 2024Q3

REPORT INFORMATION
  Report Type: Spontaneous
  Country: US (occurrence: US)
  Receive Date: 20221022
  Receipt Date: 20240924
  Transmission Date: 20241017
  Serious: No
  Sender: CELLTRION
  Company Number: US-CELLTRION INC.-2022US009397

PATIENT

DRUGS (5)
  1. INFLECTRA [Suspect]
     Active Substance: INFLIXIMAB-DYYB
     Indication: Crohn^s disease
     Dosage: UNK
     Route: 065
     Dates: start: 20211227
  2. WARFARIN [Concomitant]
     Active Substance: WARFARIN
     Dosage: UNK
     Dates: start: 201210
  3. TYLENOL [Concomitant]
     Active Substance: ACETAMINOPHEN
     Dosage: UNK
     Dates: start: 201510
  4. OMEPRAZOLE [Concomitant]
     Active Substance: OMEPRAZOLE
     Dosage: UNK
     Dates: start: 202204
  5. DICYCLOMINE [Concomitant]
     Active Substance: DICYCLOMINE HYDROCHLORIDE
     Dosage: UNK
     Dates: start: 202302

REACTIONS (7)
  - Tinnitus [Not Recovered/Not Resolved]
  - Ocular discomfort [Recovered/Resolved]
  - Lethargy [Recovered/Resolved]
  - Limb discomfort [Recovered/Resolved]
  - Administration related reaction [Recovered/Resolved]
  - Headache [Not Recovered/Not Resolved]
  - Muscular weakness [Recovered/Resolved]
